FAERS Safety Report 4477674-2 (Version None)
Quarter: 2004Q3

REPORT INFORMATION
  Report Type: 
  Country: None (occurrence: None)
  Receive Date: 20040923
  Receipt Date: 20040804
  Transmission Date: 20050211
  Serious: No
  Sender: FDA-Public Use
  Company Number: USA040874476

PATIENT
  Age: 56 Year
  Sex: Female
  Weight: 47 kg

DRUGS (6)
  1. FORTEO [Suspect]
     Indication: OSTEOPOROSIS
     Dosage: 20 UG/1 DAY
     Dates: start: 20040721
  2. FLONASE [Concomitant]
  3. CITRACAL + D [Concomitant]
  4. TUMS ULTRA (CALCIUM CARBONATE) [Concomitant]
  5. VITAMIN C [Concomitant]
  6. ALEVE [Concomitant]

REACTIONS (3)
  - NASAL CONGESTION [None]
  - PHARYNGOLARYNGEAL PAIN [None]
  - VERTIGO [None]
